FAERS Safety Report 12001151 (Version 1)
Quarter: 2016Q1

REPORT INFORMATION
  Report Type: Spontaneous
  Country: US (occurrence: US)
  Receive Date: 20160204
  Receipt Date: 20160204
  Transmission Date: 20160526
  Serious: No
  Sender: FDA-Public Use
  Company Number: US-APOTEX-2015AP011597

PATIENT
  Age: 55 Year
  Sex: Male

DRUGS (2)
  1. FLUMAZENIL INJECTION USP [Suspect]
     Active Substance: FLUMAZENIL
     Indication: MENTAL STATUS CHANGES
     Dosage: 1 MG, UNK
     Route: 042
  2. FLUMAZENIL INJECTION USP [Suspect]
     Active Substance: FLUMAZENIL
     Dosage: 0.25 MG, PER HOUR
     Route: 041

REACTIONS (2)
  - Drug ineffective [Recovered/Resolved]
  - Nausea [Unknown]
